FAERS Safety Report 18727532 (Version 2)
Quarter: 2021Q1

REPORT INFORMATION
  Report Type: Spontaneous
  Country: US (occurrence: US)
  Receive Date: 20210112
  Receipt Date: 20210319
  Transmission Date: 20210419
  Serious: No
  Sender: FDA-Public Use
  Company Number: US-ASTRAZENECA-2020SF75664

PATIENT
  Sex: Male
  Weight: 149.7 kg

DRUGS (28)
  1. BYDUREON [Suspect]
     Active Substance: EXENATIDE
     Route: 058
  2. METOPROLOL. [Suspect]
     Active Substance: METOPROLOL
     Route: 048
  3. NOVOLOG [Concomitant]
     Active Substance: INSULIN ASPART
  4. METFORMIN [Concomitant]
     Active Substance: METFORMIN HYDROCHLORIDE
  5. MULTIVITAMIN [Concomitant]
     Active Substance: VITAMINS
  6. COLACE [Concomitant]
     Active Substance: DOCUSATE SODIUM
  7. EPIPEN [Concomitant]
     Active Substance: EPINEPHRINE
  8. LANTUS [Concomitant]
     Active Substance: INSULIN GLARGINE
     Dosage: 30 USP UNITS, BID
  9. LOSARTAN. [Concomitant]
     Active Substance: LOSARTAN
  10. ATORVASTATIN [Concomitant]
     Active Substance: ATORVASTATIN
     Indication: BLOOD CHOLESTEROL
  11. INSPRA [Concomitant]
     Active Substance: EPLERENONE
  12. OLOPATADINE HCL [Concomitant]
     Active Substance: OLOPATADINE HYDROCHLORIDE
  13. IBUPROFEN. [Concomitant]
     Active Substance: IBUPROFEN
  14. LASIX [Concomitant]
     Active Substance: FUROSEMIDE
     Dosage: 20, QOD
  15. SERTRALINE [Concomitant]
     Active Substance: SERTRALINE HYDROCHLORIDE
  16. JARDIANCE [Concomitant]
     Active Substance: EMPAGLIFLOZIN
  17. TERAZOSIN [Concomitant]
     Active Substance: TERAZOSIN HYDROCHLORIDE
  18. CALCIUM PLUS VITAMIN D3 600/400 [Concomitant]
     Dosage: BID
  19. ZOLPIDEM OR AMBIEN [Concomitant]
  20. OMEPRAZOLE. [Suspect]
     Active Substance: OMEPRAZOLE
     Route: 048
  21. HYDRALAZINE [Concomitant]
     Active Substance: HYDRALAZINE HYDROCHLORIDE
  22. GABAPENTIN. [Concomitant]
     Active Substance: GABAPENTIN
  23. ZIP FIZZ CONTAINS B12 AND OTHER VITAMINS [Concomitant]
  24. NARCO [Concomitant]
  25. MELATONIN [Concomitant]
     Active Substance: MELATONIN
  26. NAPROXEN. [Concomitant]
     Active Substance: NAPROXEN
  27. ASPIRIN. [Concomitant]
     Active Substance: ASPIRIN
  28. BYDUREON BCISE [Suspect]
     Active Substance: EXENATIDE
     Indication: TYPE 2 DIABETES MELLITUS
     Route: 058

REACTIONS (5)
  - Dry eye [Unknown]
  - Lacrimation increased [Unknown]
  - Product use issue [Unknown]
  - Device leakage [Unknown]
  - Device defective [Unknown]
